FAERS Safety Report 21933072 (Version 1)
Quarter: 2023Q1

REPORT INFORMATION
  Report Type: Report from Study
  Country: US (occurrence: US)
  Receive Date: 20230131
  Receipt Date: 20230131
  Transmission Date: 20230418
  Serious: Yes (Other)
  Sender: FDA-Public Use
  Company Number: US-INTRA-CELLULAR THERAPIES, INC.-2023ICT00105

PATIENT

DRUGS (1)
  1. CAPLYTA [Suspect]
     Active Substance: LUMATEPERONE
     Dosage: UNK

REACTIONS (11)
  - Hallucination, auditory [Recovered/Resolved]
  - Migraine [Recovered/Resolved]
  - Skin burning sensation [Recovered/Resolved]
  - Initial insomnia [Recovered/Resolved]
  - Feeling abnormal [Not Recovered/Not Resolved]
  - Panic reaction [Not Recovered/Not Resolved]
  - Insomnia [Recovered/Resolved]
  - Gait disturbance [Not Recovered/Not Resolved]
  - Agitation [Recovered/Resolved]
  - Paranoia [Recovered/Resolved]
  - Mania [Recovered/Resolved]
